FAERS Safety Report 5838203-1 (Version None)
Quarter: 2008Q3

REPORT INFORMATION
  Report Type: 
  Country: None (occurrence: None)
  Receive Date: 20080806
  Receipt Date: 20080801
  Transmission Date: 20090109
  Serious: Yes (Hospitalization, Other)
  Sender: FDA-Public Use
  Company Number: 2008SP007306

PATIENT
  Age: 49 Year
  Sex: Male

DRUGS (6)
  1. REBETOL [Suspect]
     Indication: HEPATITIS C
     Dosage: 1000 MG; QD; PO, 1000 MG; QD; PO
     Route: 048
     Dates: start: 20071015, end: 20080401
  2. REBETOL [Suspect]
     Indication: HEPATITIS C
     Dosage: 1000 MG; QD; PO, 1000 MG; QD; PO
     Route: 048
     Dates: start: 20080501
  3. PEGASYS [Suspect]
     Indication: HEPATITIS C
     Dosage: 180 MCG; QW;, 180 MCG; QW;
     Dates: start: 20071015, end: 20080401
  4. PEGASYS [Suspect]
     Indication: HEPATITIS C
     Dosage: 180 MCG; QW;, 180 MCG; QW;
     Dates: start: 20080501
  5. INSULIN [Concomitant]
  6. PERCOCET [Concomitant]

REACTIONS (17)
  - BIOPSY LIVER ABNORMAL [None]
  - BLOOD GLUCOSE DECREASED [None]
  - BLOOD GLUCOSE FLUCTUATION [None]
  - CEREBROVASCULAR ACCIDENT [None]
  - CONDITION AGGRAVATED [None]
  - DECREASED APPETITE [None]
  - DEPRESSION [None]
  - DIABETES MELLITUS [None]
  - GALLBLADDER DISORDER [None]
  - HAEMATEMESIS [None]
  - HEADACHE [None]
  - HEPATIC STEATOSIS [None]
  - NEURALGIA [None]
  - NEUROPATHY PERIPHERAL [None]
  - SUICIDAL IDEATION [None]
  - URINE COLOUR ABNORMAL [None]
  - VISION BLURRED [None]
